FAERS Safety Report 19224301 (Version 1)
Quarter: 2021Q2

REPORT INFORMATION
  Report Type: Spontaneous
  Country: US (occurrence: US)
  Receive Date: 20210506
  Receipt Date: 20210506
  Transmission Date: 20210717
  Serious: No
  Sender: FDA-Public Use
  Company Number: None

PATIENT
  Age: 81 Year
  Sex: Female
  Weight: 54.9 kg

DRUGS (36)
  1. OMEGA?3 ACIDS [Concomitant]
     Active Substance: OMEGA-3 FATTY ACIDS
  2. ODORLESS GREEN TEA EXTRACT [Concomitant]
  3. RESVERTATROL [Concomitant]
  4. MOXIFLOXACIN. [Concomitant]
     Active Substance: MOXIFLOXACIN
  5. PEA PSYLLIUM HUSK [Concomitant]
  6. PREDNISOLONE ACETATE. [Concomitant]
     Active Substance: PREDNISOLONE ACETATE
  7. GABAPENTIN. [Concomitant]
     Active Substance: GABAPENTIN
  8. MINERALS [Concomitant]
     Active Substance: MINERALS
  9. MULTI(KREBS) [Concomitant]
  10. N ACETYL CYSTEINE PROTEIN POWDER [Concomitant]
  11. KETOROLAC TROMETHAMINE. [Concomitant]
     Active Substance: KETOROLAC TROMETHAMINE
  12. AMITRIPTYLINE [Concomitant]
     Active Substance: AMITRIPTYLINE
  13. CAYENNE DIGESTIVE ENZYMES [Concomitant]
  14. EFAS?DHA [Concomitant]
  15. RED YEAST RICE [Concomitant]
     Active Substance: DIETARY SUPPLEMENT
  16. VITAMIN B12 [Concomitant]
     Active Substance: CYANOCOBALAMIN
  17. VITAMIN C [Concomitant]
     Active Substance: ASCORBIC ACID
  18. ESTRADIOL. [Concomitant]
     Active Substance: ESTRADIOL
  19. NATURE?THROID [Concomitant]
     Active Substance: THYROID, PORCINE
  20. EXTRACT MAGNESIUM [Concomitant]
  21. VITAMIN B3 (NIACIN FLUSH FREE) [Concomitant]
  22. PROLENSA [Suspect]
     Active Substance: BROMFENAC SODIUM
     Indication: CATARACT OPERATION
     Dosage: ?          QUANTITY:1 DROP(S);?
     Route: 047
     Dates: start: 20210427, end: 20210430
  23. COSOPT PF [Concomitant]
     Active Substance: DORZOLAMIDE HYDROCHLORIDE\TIMOLOL MALEATE
  24. SODIUM CHLORIDE. [Concomitant]
     Active Substance: SODIUM CHLORIDE
  25. OMEGA?3 ACIDS [Concomitant]
     Active Substance: OMEGA-3 FATTY ACIDS
  26. MAGNESIUM CITRATE POWDER [Concomitant]
  27. VITAMIN B1 (BENFOTIAMINE) [Concomitant]
  28. KRILL OMEGA ?3 [Concomitant]
  29. VITAMIN B7 [Concomitant]
  30. ALPHA LIPOIC ACID [Concomitant]
     Active Substance: .ALPHA.-LIPOIC ACID
  31. CALCIUM CITRATE POWDER [Concomitant]
  32. GABA [Concomitant]
     Active Substance: HOMEOPATHICS
  33. GARLIC. [Concomitant]
     Active Substance: GARLIC
  34. TURMERIC/CURCUMIN [Concomitant]
  35. VITAMIN A (BETACAROTENE) [Concomitant]
  36. VITAMIN D3 [Concomitant]
     Active Substance: CHOLECALCIFEROL

REACTIONS (2)
  - Lethargy [None]
  - Fatigue [None]

NARRATIVE: CASE EVENT DATE: 20210501
